FAERS Safety Report 20016702 (Version 1)
Quarter: 2021Q4

REPORT INFORMATION
  Report Type: Spontaneous
  Country: US (occurrence: None)
  Receive Date: 20211104
  Receipt Date: 20211104
  Transmission Date: 20220303
  Serious: Yes (Death)
  Sender: FDA-Public Use
  Company Number: None

PATIENT
  Age: 62 Year
  Sex: Female

DRUGS (26)
  1. PREVYMIS [Suspect]
     Active Substance: LETERMOVIR
     Indication: Graft versus host disease
     Dosage: FREQUENCY : DAILY;?
     Route: 048
     Dates: start: 20200313, end: 20211103
  2. ACYCLOVIR [Concomitant]
     Active Substance: ACYCLOVIR
  3. BUPROPN HCL XL [Concomitant]
  4. CARVEDILOL [Concomitant]
     Active Substance: CARVEDILOL
  5. CLOBETASOL GEL [Concomitant]
  6. CLONAZEPAM [Concomitant]
     Active Substance: CLONAZEPAM
  7. COLCHICINE [Concomitant]
     Active Substance: COLCHICINE
  8. DEXAMTHSONE CON [Concomitant]
  9. ESCITALOPRAM [Concomitant]
     Active Substance: ESCITALOPRAM OXALATE
  10. FURISEMIDE [Concomitant]
  11. HYDROXYUREA [Concomitant]
     Active Substance: HYDROXYUREA
  12. LEVOFLOXACIN [Concomitant]
     Active Substance: LEVOFLOXACIN
  13. MELOXICAM [Concomitant]
     Active Substance: MELOXICAM
  14. METOLAZONE [Concomitant]
     Active Substance: METOLAZONE
  15. MG PLUS PROTEIN [Concomitant]
  16. OMEPRAZOLE [Concomitant]
     Active Substance: OMEPRAZOLE
  17. OXYCODONE AND ACETAMINOPHEN [Concomitant]
     Active Substance: ACETAMINOPHEN\OXYCODONE HYDROCHLORIDE
  18. POT CHLORIDE ER [Concomitant]
  19. POT CL MICRO ER [Concomitant]
  20. PREDNISONE [Concomitant]
     Active Substance: PREDNISONE
  21. PROCHLORPER [Concomitant]
  22. SULFAMETHOXAZOLE\TRIMETHOPRIM [Concomitant]
     Active Substance: SULFAMETHOXAZOLE\TRIMETHOPRIM
  23. SPIRONOLACTONE [Concomitant]
     Active Substance: SPIRONOLACTONE
  24. SUCRALFATE [Concomitant]
     Active Substance: SUCRALFATE
  25. TACROLIMUS [Concomitant]
     Active Substance: TACROLIMUS
  26. VORICONAZOLE [Concomitant]
     Active Substance: VORICONAZOLE

REACTIONS (1)
  - Death [None]

NARRATIVE: CASE EVENT DATE: 20211103
